FAERS Safety Report 9995113 (Version 1)
Quarter: 2014Q1

REPORT INFORMATION
  Report Type: Spontaneous
  Country: US (occurrence: None)
  Receive Date: 20140218
  Receipt Date: 20140218
  Transmission Date: 20141002
  Serious: Yes (Other)
  Sender: FDA-Public Use
  Company Number: 1000051880

PATIENT
  Sex: Female
  Weight: 74 kg

DRUGS (9)
  1. VIIBRYD [Suspect]
  2. LOVAZA (OMEGA-3-ACID ETHYL ESTER) (OMEGA-3-ACID ETHYL ESTER) [Concomitant]
  3. ONGLYZA (SAXAGLIPTIN HYDROCHLROIDE) (SAXAGLIPTIN HYDROCHLORIDE)? [Concomitant]
  4. RANEXA (RANOLAZINE) (RANOLAZINE) [Concomitant]
  5. ESTRADIOL (ESTRADIOL) (ESTRADIOL) [Concomitant]
  6. COREG (CARVEDILOL) (CARVEDILOL) [Concomitant]
  7. SYNTHROID (LEVOTHYROXINE SODIUM) (LEVOTHYROXINE SODIUM)? [Concomitant]
  8. METFORMIN (METFORMIN) (METFORMIN) [Concomitant]
  9. PLAVIX (CLOPIDOGREL BISULFATE) (CLOPIDOGREL BISULFATE) [Concomitant]

REACTIONS (1)
  - Serotonin syndrome [None]
